FAERS Safety Report 5532539-X (Version None)
Quarter: 2007Q4

REPORT INFORMATION
  Report Type: 
  Country: None (occurrence: None)
  Receive Date: 20071203
  Receipt Date: 20071128
  Transmission Date: 20080405
  Serious: No
  Sender: FDA-Public Use
  Company Number: US-BOEHRINGER INGELHEIM PHARMACEUTICALS, INC.-2007-BP-23851BP

PATIENT
  Age: 72 Year
  Sex: Male

DRUGS (19)
  1. SPIRIVA [Suspect]
     Indication: CHRONIC OBSTRUCTIVE PULMONARY DISEASE
     Route: 055
     Dates: start: 20070701
  2. COREG [Concomitant]
  3. AMIODARONE [Concomitant]
  4. NEXIUM [Concomitant]
  5. DIOVAN [Concomitant]
  6. MUCINEX [Concomitant]
  7. FLOMAX [Concomitant]
  8. ZANTAC [Concomitant]
  9. LASIX [Concomitant]
  10. K-DUR 10 [Concomitant]
  11. ULTRACET [Concomitant]
  12. VYTORIN [Concomitant]
  13. ALBUTEROL [Concomitant]
  14. RHINOCORT [Concomitant]
  15. NEURONTIN [Concomitant]
  16. COUMADIN [Concomitant]
  17. KLONOPIN [Concomitant]
  18. OXYGEN [Concomitant]
  19. CENTRUM [Concomitant]

REACTIONS (3)
  - HEART RATE INCREASED [None]
  - PNEUMONIA [None]
  - SPUTUM DISCOLOURED [None]
